FAERS Safety Report 15474203 (Version 2)
Quarter: 2018Q4

REPORT INFORMATION
  Report Type: Spontaneous
  Country: US (occurrence: US)
  Receive Date: 20181008
  Receipt Date: 20181227
  Transmission Date: 20190205
  Serious: Yes (Other)
  Sender: FDA-Public Use
  Company Number: US-SA-2018SA275978

PATIENT
  Age: 40 Year
  Sex: Female
  Weight: 68 kg

DRUGS (9)
  1. PARAPLATIN [Concomitant]
     Active Substance: CARBOPLATIN
  2. BUPROPION. [Concomitant]
     Active Substance: BUPROPION
     Dosage: UNK
  3. NEXIUM [ESOMEPRAZOLE SODIUM] [Concomitant]
     Dosage: UNK
  4. HERCEPTIN [Concomitant]
     Active Substance: TRASTUZUMAB
     Dosage: UNK
  5. CLARITINE [Concomitant]
     Active Substance: LORATADINE
  6. TAXOTERE [Suspect]
     Active Substance: DOCETAXEL
     Indication: BREAST CANCER FEMALE
     Dosage: 140 MG, Q3W
     Route: 042
     Dates: start: 20150319, end: 20150319
  7. TAXOTERE [Suspect]
     Active Substance: DOCETAXEL
     Dosage: 140 MG, Q3W
     Route: 042
     Dates: start: 20150702, end: 20150702
  8. TECFIDERA [Concomitant]
     Active Substance: DIMETHYL FUMARATE
     Dosage: UNK
  9. DETROL [Concomitant]
     Active Substance: TOLTERODINE TARTRATE
     Dosage: UNK

REACTIONS (2)
  - Alopecia [Recovering/Resolving]
  - Psychological trauma [Unknown]

NARRATIVE: CASE EVENT DATE: 201504
